FAERS Safety Report 7706179-8 (Version None)
Quarter: 2011Q3

REPORT INFORMATION
  Report Type: 
  Country: None (occurrence: None)
  Receive Date: 20110824
  Receipt Date: 20110817
  Transmission Date: 20111222
  Serious: Yes (Death)
  Sender: FDA-Public Use
  Company Number: JP-ELI_LILLY_AND_COMPANY-JP201107002139

PATIENT
  Age: 71 Year
  Sex: Male

DRUGS (3)
  1. FOLIC ACID [Concomitant]
  2. ALIMTA [Suspect]
     Indication: LUNG NEOPLASM MALIGNANT
     Route: 042
  3. VITAMIN B-12 [Concomitant]

REACTIONS (3)
  - NEOPLASM PROGRESSION [None]
  - PNEUMONIA [None]
  - NEUTROPENIC INFECTION [None]
